FAERS Safety Report 9541805 (Version 1)
Quarter: 2013Q3

REPORT INFORMATION
  Report Type: Report from Study
  Country: BR (occurrence: BR)
  Receive Date: 20130923
  Receipt Date: 20130923
  Transmission Date: 20140515
  Serious: Yes (Other)
  Sender: FDA-Public Use
  Company Number: PHHY2013BR105148

PATIENT
  Age: 61 Year
  Sex: Male

DRUGS (3)
  1. FORASEQ [Suspect]
     Dosage: UNK UKN, BID
  2. SALMETEROL/FLUTICASONPROPIONAAT [Suspect]
     Dosage: 50 UG, BID
  3. PREDNISONE [Concomitant]
     Dosage: 20 MG, UNK

REACTIONS (10)
  - Lung hyperinflation [Unknown]
  - Vital capacity decreased [Unknown]
  - Rales [Unknown]
  - Heart rate increased [Recovered/Resolved]
  - Bronchial obstruction [Unknown]
  - Weight increased [Unknown]
  - Oesophageal candidiasis [Unknown]
  - Odynophagia [Unknown]
  - Oral candidiasis [Unknown]
  - Mouth ulceration [Unknown]
